FAERS Safety Report 15597170 (Version 7)
Quarter: 2021Q2

REPORT INFORMATION
  Report Type: Report from Study
  Country: TR (occurrence: TR)
  Receive Date: 20181108
  Receipt Date: 20210601
  Transmission Date: 20210716
  Serious: Yes (Hospitalization)
  Sender: FDA-Public Use
  Company Number: TR-ROCHE-2167534

PATIENT
  Age: 72 Year
  Sex: Female
  Weight: 50.7 kg

DRUGS (38)
  1. BENZYDAMINE HCL [Concomitant]
     Dates: start: 20180806, end: 20180811
  2. PANTOPRAZOL [Concomitant]
     Active Substance: PANTOPRAZOLE SODIUM
     Indication: SMALL INTESTINAL OBSTRUCTION
     Dates: start: 20180713, end: 20180717
  3. PANTOPRAZOL [Concomitant]
     Active Substance: PANTOPRAZOLE SODIUM
     Dates: start: 20180806, end: 20180811
  4. DEXAMETHASONE. [Concomitant]
     Active Substance: DEXAMETHASONE
     Route: 042
     Dates: start: 20180814, end: 20180814
  5. DEXAMETHASONE. [Concomitant]
     Active Substance: DEXAMETHASONE
     Route: 042
     Dates: start: 20180710, end: 20180710
  6. ATEZOLIZUMAB. [Suspect]
     Active Substance: ATEZOLIZUMAB
     Indication: OVARIAN CANCER
     Dosage: MOST RECENT DOSE ON 10/JUL/2018?MOST RECENT DOSE : 16/OCT/2018
     Route: 042
     Dates: start: 20180515
  7. PALONOSETRON HCL [Concomitant]
     Active Substance: PALONOSETRON HYDROCHLORIDE
     Dates: start: 20180710, end: 20180710
  8. PHENIRAMINE [Concomitant]
     Active Substance: PHENIRAMINE
     Dates: start: 20180925, end: 20180925
  9. BENZYDAMINE HCL [Concomitant]
     Indication: TONSILLITIS
     Dates: start: 20180731, end: 20180803
  10. PIPERACILLIN SODIUM;TAZOBACTAM SODIUM [Concomitant]
     Active Substance: PIPERACILLIN SODIUM\TAZOBACTAM SODIUM
     Indication: SMALL INTESTINAL OBSTRUCTION
     Dates: start: 20180806, end: 20180806
  11. FILGRASTIM [Concomitant]
     Active Substance: FILGRASTIM
     Route: 058
     Dates: start: 20180814, end: 20180814
  12. PACLITAXEL. [Suspect]
     Active Substance: PACLITAXEL
     Indication: OVARIAN CANCER
     Dosage: MOST RECENT DOSE (160 MG) ON 10/JUL/2018?DATE OF MOST RECENT DOSE OF PACLITAXEL PRIOR TO AE ONSET: 1
     Route: 042
     Dates: start: 20180515
  13. RANITIDIN [Concomitant]
     Active Substance: RANITIDINE HYDROCHLORIDE
     Dates: start: 20180814, end: 20180814
  14. DEXAMETHASONE. [Concomitant]
     Active Substance: DEXAMETHASONE
     Route: 042
     Dates: start: 20180814, end: 20180814
  15. PARACETAMOL [Concomitant]
     Active Substance: ACETAMINOPHEN
     Indication: PAIN
     Dates: start: 20180713, end: 20180713
  16. ENOXAPARIN SODIUM. [Concomitant]
     Active Substance: ENOXAPARIN SODIUM
     Indication: EMBOLISM
     Dates: start: 20180814
  17. ENOXAPARIN SODIUM. [Concomitant]
     Active Substance: ENOXAPARIN SODIUM
     Indication: TONSILLITIS
     Dates: start: 20180806, end: 20180811
  18. ENOXAPARIN SODIUM. [Concomitant]
     Active Substance: ENOXAPARIN SODIUM
     Dates: start: 20180731, end: 20180803
  19. VITAMINE D [Concomitant]
     Active Substance: CHOLECALCIFEROL
     Dates: start: 20180814
  20. RANITIDIN [Concomitant]
     Active Substance: RANITIDINE HYDROCHLORIDE
     Dates: start: 20180710, end: 20180710
  21. UREA. [Concomitant]
     Active Substance: UREA
     Indication: DRY SKIN
     Dates: start: 20180906
  22. PANTOPRAZOL [Concomitant]
     Active Substance: PANTOPRAZOLE SODIUM
     Dates: start: 20180731, end: 20180803
  23. CARBOPLATIN. [Suspect]
     Active Substance: CARBOPLATIN
     Indication: OVARIAN CANCER
     Dosage: AT A DOSE TO ACHIEVE A TARGET AREA UNDER THE CURVE (AUC) OF 6 MILLIGRAMS PER MILLILITER*MINUTE ?MOST
     Route: 042
     Dates: start: 20180515
  24. ESOMEPRAZOLE. [Concomitant]
     Active Substance: ESOMEPRAZOLE MAGNESIUM
     Dates: start: 20180814
  25. PALONOSETRON HCL [Concomitant]
     Active Substance: PALONOSETRON HYDROCHLORIDE
     Dates: start: 20180925, end: 20180925
  26. MEGESTROL ACETATE. [Concomitant]
     Active Substance: MEGESTROL ACETATE
     Indication: HYPOMAGNESAEMIA
     Dates: start: 20180706
  27. PARACETAMOL [Concomitant]
     Active Substance: ACETAMINOPHEN
     Dates: start: 20181025, end: 20181106
  28. ENOXAPARIN SODIUM. [Concomitant]
     Active Substance: ENOXAPARIN SODIUM
     Dates: start: 20181025, end: 20181106
  29. PHENIRAMINE [Concomitant]
     Active Substance: PHENIRAMINE
     Dates: start: 20180710, end: 20180710
  30. PHENIRAMINE [Concomitant]
     Active Substance: PHENIRAMINE
     Dates: start: 20180814, end: 20180814
  31. SERTRALINE [Concomitant]
     Active Substance: SERTRALINE HYDROCHLORIDE
     Indication: ANXIETY
     Dates: start: 20180806
  32. PIPERACILLIN SODIUM;TAZOBACTAM SODIUM [Concomitant]
     Active Substance: PIPERACILLIN SODIUM\TAZOBACTAM SODIUM
     Indication: TONSILLITIS
     Dates: start: 20180731, end: 20180803
  33. BEVACIZUMAB. [Suspect]
     Active Substance: BEVACIZUMAB
     Indication: OVARIAN CANCER
     Dosage: MOST RECENT DOSE (750 MG) ON 10/JUL/2018
     Route: 042
     Dates: start: 20180619
  34. PALONOSETRON HCL [Concomitant]
     Active Substance: PALONOSETRON HYDROCHLORIDE
     Dates: start: 20180814, end: 20180814
  35. METOCLOPRAMIDE HCL [Concomitant]
     Active Substance: METOCLOPRAMIDE HYDROCHLORIDE
     Indication: VOMITING
     Dates: start: 20180713, end: 20180717
  36. METOCLOPRAMIDE HCL [Concomitant]
     Active Substance: METOCLOPRAMIDE HYDROCHLORIDE
     Indication: SMALL INTESTINAL OBSTRUCTION
     Dates: start: 20180806, end: 20180811
  37. PARACETAMOL [Concomitant]
     Active Substance: ACETAMINOPHEN
     Indication: SMALL INTESTINAL OBSTRUCTION
     Dates: start: 20180806, end: 20180811
  38. PANTOPRAZOL [Concomitant]
     Active Substance: PANTOPRAZOLE SODIUM
     Dates: start: 20181025, end: 20181106

REACTIONS (1)
  - Small intestinal obstruction [Recovered/Resolved]

NARRATIVE: CASE EVENT DATE: 20180806
